FAERS Safety Report 10439578 (Version 1)
Quarter: 2014Q3

REPORT INFORMATION
  Report Type: Spontaneous
  Country: None (occurrence: US)
  Receive Date: 20140908
  Receipt Date: 20140908
  Transmission Date: 20150326
  Serious: No
  Sender: FDA-Public Use
  Company Number: US-BRISTOL-MYERS SQUIBB COMPANY-19986801

PATIENT
  Age: 49 Year
  Sex: Male
  Weight: 97.05 kg

DRUGS (11)
  1. ATORVASTATIN [Concomitant]
     Active Substance: ATORVASTATIN
  2. METFORMIN [Concomitant]
     Active Substance: METFORMIN HYDROCHLORIDE
  3. VITAMIN SUPPLEMENT [Concomitant]
     Active Substance: VITAMINS
  4. MINERALS [Concomitant]
     Active Substance: MINERALS
  5. ABILIFY [Suspect]
     Active Substance: ARIPIPRAZOLE
     Indication: SCHIZOPHRENIA
     Dates: start: 201308, end: 201401
  6. LANTUS [Concomitant]
     Active Substance: INSULIN GLARGINE
     Dosage: 1 DF: 20 UNITS.
  7. PRAVASTATIN SODIUM. [Concomitant]
     Active Substance: PRAVASTATIN SODIUM
  8. CELEXA [Concomitant]
     Active Substance: CITALOPRAM HYDROBROMIDE
  9. LISINOPRIL. [Concomitant]
     Active Substance: LISINOPRIL
  10. SERTRALINE [Concomitant]
     Active Substance: SERTRALINE HYDROCHLORIDE
  11. RISPERDAL [Concomitant]
     Active Substance: RISPERIDONE

REACTIONS (1)
  - Sleep disorder [Unknown]
